FAERS Safety Report 6529302-X (Version None)
Quarter: 2010Q1

REPORT INFORMATION
  Report Type: 
  Country: None (occurrence: None)
  Receive Date: 20100107
  Receipt Date: 20091229
  Transmission Date: 20100710
  Serious: Yes (Other)
  Sender: FDA-Public Use
  Company Number: PHEH2009US17310

PATIENT
  Sex: Female
  Weight: 68.027 kg

DRUGS (9)
  1. EXTAVIA [Suspect]
     Indication: MULTIPLE SCLEROSIS
     Dosage: 0.5 MG, QOD
     Route: 058
     Dates: start: 20091109
  2. METHIZOL [Concomitant]
     Dosage: 5 MG, QD
  3. LAMOTRIGINE [Concomitant]
     Dosage: 100 MG, BID
  4. CONTRACEPTIVES NOS [Concomitant]
  5. LAMICTAL [Concomitant]
     Indication: CONVULSION
  6. METHIMAZOLE [Concomitant]
     Indication: HYPERTHYROIDISM
  7. VITAMIN D [Concomitant]
  8. FOLATE SODIUM [Concomitant]
  9. CALCIUM [Concomitant]

REACTIONS (4)
  - CONDITION AGGRAVATED [None]
  - INFLUENZA LIKE ILLNESS [None]
  - INJECTION SITE ERYTHEMA [None]
  - OPTIC NEURITIS [None]
